FAERS Safety Report 8287127-1 (Version None)
Quarter: 2012Q2

REPORT INFORMATION
  Report Type: 
  Country: None (occurrence: None)
  Receive Date: 20120416
  Receipt Date: 20120409
  Transmission Date: 20120825
  Serious: Yes (Other)
  Sender: FDA-Public Use
  Company Number: US-AMGEN-USASP2011003767

PATIENT
  Age: 50 Year
  Sex: Female

DRUGS (1)
  1. ENBREL [Suspect]
     Indication: PSORIASIS
     Dosage: 50 MG, QWK
     Dates: start: 20080101, end: 20110121

REACTIONS (17)
  - PSORIATIC ARTHROPATHY [None]
  - MENINGIOMA [None]
  - PSORIASIS [None]
  - SKIN SWELLING [None]
  - CYST [None]
  - ARTHRALGIA [None]
  - BACK PAIN [None]
  - PAIN IN EXTREMITY [None]
  - HEADACHE [None]
  - PARAESTHESIA [None]
  - HYPOAESTHESIA [None]
  - MUSCULAR WEAKNESS [None]
  - CARPAL TUNNEL SYNDROME [None]
  - NECK PAIN [None]
  - WEIGHT INCREASED [None]
  - MYALGIA [None]
  - RASH [None]
